FAERS Safety Report 5876887-2 (Version None)
Quarter: 2008Q3

REPORT INFORMATION
  Report Type: 
  Country: None (occurrence: None)
  Receive Date: 20080910
  Receipt Date: 20080901
  Transmission Date: 20090109
  Serious: Yes (Hospitalization, Disabling)
  Sender: FDA-Public Use
  Company Number: FR-ASTRAZENECA-2003CG01307

PATIENT
  Age: 50 Year
  Sex: Male

DRUGS (2)
  1. XYLOCAINE [Suspect]
     Indication: LOCAL ANAESTHESIA
     Route: 058
     Dates: start: 20030901, end: 20030901
  2. HYDROCORTANCYL [Suspect]
     Indication: SCIATICA
     Route: 037
     Dates: start: 20030901, end: 20030901

REACTIONS (1)
  - PARAPLEGIA [None]
